FAERS Safety Report 4364364-X (Version None)
Quarter: 2004Q2

REPORT INFORMATION
  Report Type: 
  Country: None (occurrence: None)
  Receive Date: 20040519
  Receipt Date: 20040511
  Transmission Date: 20050107
  Serious: Yes (Life-Threatening, Hospitalization, Disabling)
  Sender: FDA-Public Use
  Company Number: 2004-BP-03638RO

PATIENT
  Age: 47 Year
  Sex: Male
  Weight: 68 kg

DRUGS (2)
  1. LITHIUM CARBONATE [Suspect]
     Indication: BIPOLAR DISORDER
     Dosage: 2100 MG/DAY (300 MG), PO
     Route: 048
     Dates: start: 19960101, end: 20030901
  2. SOMA [Concomitant]

REACTIONS (9)
  - COMA [None]
  - CYSTITIS [None]
  - DIARRHOEA [None]
  - DRUG LEVEL ABOVE THERAPEUTIC [None]
  - DRUG TOXICITY [None]
  - INCOHERENT [None]
  - INFLUENZA [None]
  - NERVOUS SYSTEM DISORDER [None]
  - RENAL FAILURE [None]
